FAERS Safety Report 12773967 (Version 2)
Quarter: 2017Q1

REPORT INFORMATION
  Report Type: Spontaneous
  Country: CA (occurrence: CA)
  Receive Date: 20160923
  Receipt Date: 20170106
  Transmission Date: 20170428
  Serious: Yes (Death, Hospitalization, Other)
  Sender: FDA-Public Use
  Company Number: CA-BRISTOL-MYERS SQUIBB COMPANY-BMS-2016-069681

PATIENT
  Age: 63 Year
  Sex: Female

DRUGS (1)
  1. OPDIVO [Suspect]
     Active Substance: NIVOLUMAB
     Indication: NON-SMALL CELL LUNG CANCER
     Dosage: 3 MG/KG, Q2WK
     Route: 042

REACTIONS (7)
  - General physical health deterioration [Unknown]
  - Urine output decreased [Recovered/Resolved]
  - Pruritus [Unknown]
  - Erythema [Unknown]
  - Pulmonary mass [Fatal]
  - Cancer pain [Unknown]
  - Death [Fatal]

NARRATIVE: CASE EVENT DATE: 20160725
